FAERS Safety Report 9590925 (Version 1)
Quarter: 2013Q4

REPORT INFORMATION
  Report Type: Spontaneous
  Country: US (occurrence: US)
  Receive Date: 20131003
  Receipt Date: 20131003
  Transmission Date: 20140711
  Serious: No
  Sender: FDA-Public Use
  Company Number: US-AMGEN-USASP2012080111

PATIENT
  Age: 34 Year
  Sex: Male
  Weight: 108.84 kg

DRUGS (14)
  1. ENBREL [Suspect]
     Indication: ANKYLOSING SPONDYLITIS
     Dosage: 50 MG, QWK
     Route: 058
  2. AMLODIPIN                          /00972401/ [Concomitant]
     Dosage: 10 MG, UNK
  3. PRAVASTATIN [Concomitant]
     Dosage: 10 MG, UNK
  4. BENAZEPRIL [Concomitant]
     Dosage: 40 MG, UNK
  5. ALLOPURINOL [Concomitant]
     Dosage: 100 MG, UNK
  6. NORCO [Concomitant]
     Dosage: 7.5 TO 325
  7. TRAZODONE [Concomitant]
     Dosage: 100 MG, UNK
  8. MELATONIN [Concomitant]
     Dosage: 3 MG, UNK
  9. CHLORDIAZEPOXIDE W/CLIDINIUM [Concomitant]
     Dosage: 5 TO 2.5 MG, UNK
  10. COLCRYS [Concomitant]
     Dosage: 0.6 MG, UNK
  11. OMEPRAZOLE [Concomitant]
     Dosage: 10 MG, UNK
  12. MAGNESIUM [Concomitant]
     Dosage: 400 MG, UNK
  13. ZYRTEC ALLERGY [Concomitant]
     Dosage: 10 MG, UNK
  14. QUINAPRIL [Concomitant]
     Dosage: 20 MG, UNK

REACTIONS (2)
  - Disturbance in attention [Unknown]
  - Sluggishness [Unknown]
